FAERS Safety Report 23734110 (Version 2)
Quarter: 2024Q4

REPORT INFORMATION
  Report Type: Report from Study
  Country: DE (occurrence: DE)
  Receive Date: 20240412
  Receipt Date: 20241011
  Transmission Date: 20250114
  Serious: Yes (Hospitalization, Other)
  Sender: ABBVIE
  Company Number: DE-ABBVIE-5713193

PATIENT
  Age: 80 Year
  Sex: Female

DRUGS (7)
  1. RINVOQ [Suspect]
     Active Substance: UPADACITINIB
     Indication: Rheumatoid arthritis
     Dosage: FORM STRENGTH: 15 MILLIGRAM
     Route: 048
     Dates: start: 202108, end: 202211
  2. METHOTREXATE SODIUM [Concomitant]
     Active Substance: METHOTREXATE SODIUM
     Indication: Rheumatoid arthritis
     Dosage: START DATE TEXT: BETWEEN28AUG2023 AND22FEB2024
  3. METHOTREXATE SODIUM [Concomitant]
     Active Substance: METHOTREXATE SODIUM
     Indication: Rheumatoid arthritis
  4. METHOTREXATE SODIUM [Concomitant]
     Active Substance: METHOTREXATE SODIUM
     Indication: Rheumatoid arthritis
     Dosage: FORM STRENGTH: 10 MILLIGRAM?START DATE TEXT: BEFORE 09-MAY-2019?STOP DATE TEXT: BETWEEN05AUG2019 ...
  5. METHOTREXATE SODIUM [Concomitant]
     Active Substance: METHOTREXATE SODIUM
     Indication: Rheumatoid arthritis
     Dosage: START DATE TEXT: BETWEEN05AUG2019 AND11DEC2019?STOP DATE TEXT: BETWEEN11DEC2019 AND 15JUL2020?FOR...
  6. METHOTREXATE SODIUM [Concomitant]
     Active Substance: METHOTREXATE SODIUM
     Indication: Rheumatoid arthritis
     Dosage: START DATE TEXT: BETWEEN15JUL2020 AND 29JAN2021?FORM STRENGTH: 10 MILLIGRAM
  7. METHOTREXATE SODIUM [Concomitant]
     Active Substance: METHOTREXATE SODIUM
     Indication: Rheumatoid arthritis
     Dosage: FORM STRENGTH: 10 MILLIGRAM?START DATE TEXT: BETWEEN15JAN2023 AND 28AUG2023?STOP DATE TEXT: BETWE...

REACTIONS (5)
  - Cerebral infarction [Unknown]
  - Rehabilitation therapy [Unknown]
  - Acute myocardial infarction [Unknown]
  - Macroangiopathy [Unknown]
  - Cardiac failure congestive [Unknown]

NARRATIVE: CASE EVENT DATE: 20230422
